FAERS Safety Report 4468278-6 (Version None)
Quarter: 2004Q4

REPORT INFORMATION
  Report Type: 
  Country: None (occurrence: None)
  Receive Date: 20041007
  Receipt Date: 20040930
  Transmission Date: 20050328
  Serious: Yes (Other)
  Sender: FDA-Public Use
  Company Number: GB-BRISTOL-MYERS SQUIBB COMPANY-12719878

PATIENT

DRUGS (2)
  1. TAXOL [Suspect]
     Route: 042
  2. HERCEPTIN [Suspect]

REACTIONS (4)
  - MUCOSAL INFLAMMATION [None]
  - NEUTROPENIA [None]
  - PULMONARY OEDEMA [None]
  - PYREXIA [None]
